FAERS Safety Report 8449433-7 (Version None)
Quarter: 2012Q2

REPORT INFORMATION
  Report Type: 
  Country: None (occurrence: None)
  Receive Date: 20120619
  Receipt Date: 20120612
  Transmission Date: 20120825
  Serious: Yes (Death, Hospitalization, Other)
  Sender: FDA-Public Use
  Company Number: US-BAXTER-2012BAX007659

PATIENT
  Sex: Female

DRUGS (7)
  1. DIANEAL LOW CALCIUM W/ DEXTROSE 1.5% [Suspect]
     Indication: PERITONEAL DIALYSIS
     Route: 033
     Dates: end: 20120513
  2. DIANEAL LOW CALCIUM W/ DEXTROSE 1.5% [Suspect]
     Route: 033
     Dates: end: 20120513
  3. DIANEAL [Suspect]
     Indication: PERITONEAL DIALYSIS
     Route: 033
     Dates: end: 20120513
  4. DIANEAL [Suspect]
     Route: 033
     Dates: end: 20120513
  5. DIANEAL LOW CALCIUM W/ DEXTROSE 1.5% [Suspect]
     Route: 033
     Dates: end: 20120513
  6. DIANEAL [Suspect]
     Route: 033
     Dates: end: 20120513
  7. COUMADIN [Suspect]
     Route: 065

REACTIONS (6)
  - GRAFT THROMBOSIS [None]
  - POOR PERIPHERAL CIRCULATION [None]
  - SEPSIS [None]
  - PARONYCHIA [None]
  - PAIN IN EXTREMITY [None]
  - SOFT TISSUE NECROSIS [None]
